FAERS Safety Report 9949841 (Version 1)
Quarter: 2014Q1

REPORT INFORMATION
  Report Type: Spontaneous
  Country: US (occurrence: None)
  Receive Date: 20140124
  Receipt Date: 20140124
  Transmission Date: 20141002
  Serious: Yes (Hospitalization)
  Sender: FDA-Public Use
  Company Number: 2010AP000699

PATIENT
  Age: 38 Year
  Sex: Female

DRUGS (2)
  1. ONDANSETRON INJECTION [Suspect]
     Indication: VOMITING
     Route: 042
  2. ONDANSETRON INJECTION [Suspect]
     Indication: ODYNOPHAGIA
     Route: 042

REACTIONS (1)
  - Atrioventricular block second degree [None]
